FAERS Safety Report 7594134-0 (Version None)
Quarter: 2011Q3

REPORT INFORMATION
  Report Type: 
  Country: None (occurrence: None)
  Receive Date: 20110706
  Receipt Date: 20110704
  Transmission Date: 20111222
  Serious: Yes (Other)
  Sender: FDA-Public Use
  Company Number: TW-PFIZER INC-2011148665

PATIENT

DRUGS (1)
  1. XANAX [Suspect]
     Dosage: 0.25 MG, AS NEEDED
     Route: 048

REACTIONS (4)
  - AMNESIA [None]
  - IRRITABILITY [None]
  - AGGRESSION [None]
  - IMPULSE-CONTROL DISORDER [None]
